FAERS Safety Report 6286554-1 (Version None)
Quarter: 2009Q3

REPORT INFORMATION
  Report Type: 
  Country: None (occurrence: None)
  Receive Date: 20090728
  Receipt Date: 20090720
  Transmission Date: 20100115
  Serious: Yes (Other)
  Sender: FDA-Public Use
  Company Number: FR-BRISTOL-MYERS SQUIBB COMPANY-14716732

PATIENT
  Age: 44 Year
  Sex: Male

DRUGS (4)
  1. EFAVIRENZ [Suspect]
  2. LAMIVUDINE [Suspect]
  3. ABACAVIR [Suspect]
  4. NEVIRAPINE [Suspect]

REACTIONS (1)
  - DRUG RESISTANCE [None]
